FAERS Safety Report 7207191-8 (Version None)
Quarter: 2011Q1

REPORT INFORMATION
  Report Type: 
  Country: None (occurrence: None)
  Receive Date: 20110103
  Receipt Date: 20101223
  Transmission Date: 20110831
  Serious: Yes (Hospitalization, Other)
  Sender: FDA-Public Use
  Company Number: US-ELI_LILLY_AND_COMPANY-US201012005900

PATIENT
  Sex: Female

DRUGS (3)
  1. PRAVASTATIN [Concomitant]
  2. FORTEO [Suspect]
     Indication: OSTEOPOROSIS
     Dosage: 20 UG, DAILY (1/D)
  3. SYNTHROID [Concomitant]

REACTIONS (4)
  - JAUNDICE [None]
  - KIDNEY INFECTION [None]
  - GALLBLADDER OPERATION [None]
  - BONE PAIN [None]
